FAERS Safety Report 7505965-7 (Version None)
Quarter: 2011Q2

REPORT INFORMATION
  Report Type: 
  Country: None (occurrence: None)
  Receive Date: 20110526
  Receipt Date: 20110514
  Transmission Date: 20111010
  Serious: Yes (Other)
  Sender: FDA-Public Use
  Company Number: PHHY2011BR41836

PATIENT
  Sex: Male

DRUGS (3)
  1. EXELON [Suspect]
     Dosage: 1 DF/24 HOURS
     Route: 062
  2. PANTOPRAZOLE [Concomitant]
     Indication: ABDOMINAL DISCOMFORT
     Dosage: 1 DF,IN THE MORNING
     Route: 048
  3. EXELON [Suspect]
     Indication: DEMENTIA ALZHEIMER'S TYPE
     Dosage: 1 DF, DAILY
     Dates: start: 20090101

REACTIONS (4)
  - MEMORY IMPAIRMENT [None]
  - DEPRESSED MOOD [None]
  - AGITATION [None]
  - CEREBROVASCULAR ACCIDENT [None]
